FAERS Safety Report 8053031-7 (Version None)
Quarter: 2012Q1

REPORT INFORMATION
  Report Type: 
  Country: None (occurrence: None)
  Receive Date: 20120118
  Receipt Date: 20120118
  Transmission Date: 20120608
  Serious: Yes (Hospitalization)
  Sender: FDA-Public Use
  Company Number: IT-SANOFI-AVENTIS-2012SA002330

PATIENT
  Age: 69 Year
  Sex: Male

DRUGS (6)
  1. ELOXATIN [Suspect]
     Route: 042
     Dates: start: 20080317, end: 20080317
  2. LEUCOVORIN CALCIUM [Concomitant]
     Route: 042
     Dates: start: 20080317, end: 20080317
  3. LEUCOVORIN CALCIUM [Concomitant]
     Route: 042
     Dates: start: 20080523, end: 20080523
  4. FLUOROURACIL [Concomitant]
     Route: 042
     Dates: start: 20080523, end: 20080523
  5. ELOXATIN [Suspect]
     Route: 042
     Dates: start: 20080523, end: 20080523
  6. FLUOROURACIL [Concomitant]
     Route: 042
     Dates: start: 20080317, end: 20080317

REACTIONS (1)
  - CARDIAC FAILURE [None]
